FAERS Safety Report 6760391-3 (Version None)
Quarter: 2010Q2

REPORT INFORMATION
  Report Type: 
  Country: None (occurrence: None)
  Receive Date: 20100608
  Receipt Date: 20100526
  Transmission Date: 20101027
  Serious: Yes (Hospitalization)
  Sender: FDA-Public Use
  Company Number: US-JNJCH-2010010309

PATIENT
  Sex: Female
  Weight: 97.5 kg

DRUGS (10)
  1. BENADRYL [Suspect]
     Indication: LATEX ALLERGY
     Route: 042
     Dates: start: 20100120, end: 20100421
  2. TAGAMET [Suspect]
     Indication: LATEX ALLERGY
     Route: 042
     Dates: start: 20100120, end: 20100421
  3. SOLU-MEDROL [Suspect]
     Indication: LATEX ALLERGY
     Route: 042
     Dates: start: 20100120, end: 20100421
  4. EPINEPHRINE [Suspect]
     Indication: LATEX ALLERGY
     Route: 058
     Dates: start: 20100120, end: 20100421
  5. ZANTAC [Suspect]
     Indication: HYPERSENSITIVITY
     Route: 042
     Dates: start: 20100420, end: 20100421
  6. DOXYCYCLINE [Suspect]
     Indication: PNEUMONIA
     Route: 048
     Dates: start: 20100115, end: 20100124
  7. TOPAMAX [Concomitant]
     Indication: MIGRAINE
     Dosage: TEXT:UNSPECIFIED
     Route: 065
  8. XOPENEX [Concomitant]
     Indication: DRUG USE FOR UNKNOWN INDICATION
     Dosage: TEXT:UNSPECIFIED
     Route: 065
  9. AZMACORT [Concomitant]
     Indication: DRUG USE FOR UNKNOWN INDICATION
     Dosage: TEXT:UNSPECIFIED
     Route: 065
  10. ALBUTEROL [Concomitant]
     Indication: DRUG USE FOR UNKNOWN INDICATION
     Dosage: TEXT:UNSPECIFIED
     Route: 065

REACTIONS (3)
  - ANAPHYLACTIC REACTION [None]
  - BLOOD POTASSIUM DECREASED [None]
  - DERMATITIS ALLERGIC [None]
